FAERS Safety Report 12446742 (Version 1)
Quarter: 2016Q2

REPORT INFORMATION
  Report Type: Spontaneous
  Country: US (occurrence: US)
  Receive Date: 20160608
  Receipt Date: 20160608
  Transmission Date: 20160815
  Serious: No
  Sender: FDA-Public Use
  Company Number: US-PFIZER INC-2016261439

PATIENT
  Age: 67 Year
  Sex: Male
  Weight: 78.47 kg

DRUGS (3)
  1. GABAPENTIN. [Suspect]
     Active Substance: GABAPENTIN
     Dosage: UNK
  2. PENTAFLUCIN [Suspect]
     Active Substance: ACETAMINOPHEN\ASCORBIC ACID\DIPHENHYDRAMINE\RUTIN
     Dosage: UNK
  3. BABY ASPIRIN [Concomitant]
     Active Substance: ASPIRIN
     Dosage: 81 MG, 1X/DAY

REACTIONS (1)
  - Drug ineffective [Unknown]
